FAERS Safety Report 4504471-1 (Version None)
Quarter: 2004Q4

REPORT INFORMATION
  Report Type: 
  Country: None (occurrence: None)
  Receive Date: 20041117
  Receipt Date: 20041117
  Transmission Date: 20050328
  Serious: Yes (Hospitalization)
  Sender: FDA-Public Use
  Company Number: None

PATIENT
  Age: 57 Year
  Sex: Male
  Weight: 82.6 kg

DRUGS (18)
  1. SEROQUEL [Suspect]
     Dosage: 100MG HS, BY MOUTH
     Route: 048
     Dates: start: 20040611, end: 20040612
  2. PREDNISONE TAB [Concomitant]
  3. CHLORDIAZEPOXIDE CAP [Concomitant]
  4. NICOTINE TRANSDERMAL SYSTEM [Concomitant]
  5. INSULIN, HUMAN REG, NOVOLIN-R [Concomitant]
  6. OXYCODONE AND ACETAMINOPHEN [Concomitant]
  7. TRAZODONE HCL (DESYREL) TAB [Concomitant]
  8. SERTRALINE HCL (ZOLOFT) TAB [Concomitant]
  9. GABAPENTIN CAP [Concomitant]
  10. SIMVASTATIN (ZOCOR) TAB [Concomitant]
  11. LISINOPRIL [Concomitant]
  12. OMEPRAZOLE (PRILOSEC FOR INPATIENT USE) CAP, SA [Concomitant]
  13. THIAMINE HCL TAB [Concomitant]
  14. FOLIC ACID TAB [Concomitant]
  15. METOPROLOL TARTRATE TAB [Concomitant]
  16. DIAZEPAM INJ [Concomitant]
  17. CLOPIDOGREL BISULFATE TAB [Concomitant]
  18. ASPIRIN TAB [Concomitant]

REACTIONS (2)
  - HYPOTENSION [None]
  - MENTAL STATUS CHANGES [None]
